FAERS Safety Report 8547708-4 (Version None)
Quarter: 2012Q3

REPORT INFORMATION
  Report Type: 
  Country: None (occurrence: None)
  Receive Date: 20120727
  Receipt Date: 20120427
  Transmission Date: 20120928
  Serious: No
  Sender: FDA-Public Use
  Company Number: US-ASTRAZENECA-2012SE27878

PATIENT
  Age: 12 Year
  Sex: Female

DRUGS (1)
  1. SEROQUEL [Suspect]
     Indication: DEPRESSION
     Route: 048

REACTIONS (4)
  - MENTAL DISORDER [None]
  - INCREASED APPETITE [None]
  - OVERWEIGHT [None]
  - AFFECTIVE DISORDER [None]
